FAERS Safety Report 15220727 (Version 1)
Quarter: 2018Q3

REPORT INFORMATION
  Report Type: Spontaneous
  Country: JP (occurrence: JP)
  Receive Date: 20180731
  Receipt Date: 20180731
  Transmission Date: 20181010
  Serious: Yes (Other)
  Sender: FDA-Public Use
  Company Number: JP-ANIPHARMA-2018-JP-000116

PATIENT
  Age: 88 Year
  Sex: Female

DRUGS (1)
  1. VANCOMYCIN HYDROCHLORIDE (NON?SPECIFIC) [Suspect]
     Active Substance: VANCOMYCIN HYDROCHLORIDE
     Indication: PNEUMONIA ASPIRATION

REACTIONS (1)
  - Drug reaction with eosinophilia and systemic symptoms [Unknown]
